FAERS Safety Report 16456532 (Version 4)
Quarter: 2019Q3

REPORT INFORMATION
  Report Type: Report from Study
  Country: BE (occurrence: BE)
  Receive Date: 20190620
  Receipt Date: 20190916
  Transmission Date: 20191004
  Serious: Yes (Hospitalization)
  Sender: FDA-Public Use
  Company Number: BE-GILEAD-2019-0414177

PATIENT
  Age: 76 Year
  Sex: Male
  Weight: 75 kg

DRUGS (15)
  1. MINIPRESS [Concomitant]
     Active Substance: PRAZOSIN HYDROCHLORIDE
     Dosage: UNK
     Route: 048
     Dates: start: 201409
  2. FOLAVIT [Concomitant]
     Active Substance: FOLIC ACID
  3. LEDERTREXATE [METHOTREXATE] [Concomitant]
     Active Substance: METHOTREXATE
  4. ASAFLOW [Concomitant]
     Active Substance: ASPIRIN
     Dosage: UNK
     Route: 048
     Dates: start: 201409
  5. ELOCOM [Concomitant]
     Active Substance: MOMETASONE FUROATE
  6. DAFALGAN [Concomitant]
     Active Substance: ACETAMINOPHEN
  7. PENTAMIDINE [Concomitant]
     Active Substance: PENTAMIDINE
     Dosage: UNK
     Route: 055
     Dates: start: 20181218
  8. IDELALISIB [Suspect]
     Active Substance: IDELALISIB
     Indication: B-CELL LYMPHOMA
     Dosage: 150 MG, BID
     Route: 048
     Dates: start: 20190126
  9. IDELALISIB [Suspect]
     Active Substance: IDELALISIB
     Dosage: 150 MG, BID
     Route: 048
     Dates: start: 20171218, end: 20180627
  10. ENSTILAR [Concomitant]
     Active Substance: BETAMETHASONE DIPROPIONATE\CALCIPOTRIENE HYDRATE
  11. TRAVOGEN [Concomitant]
     Active Substance: ISOCONAZOLE NITRATE
  12. IDELALISIB [Suspect]
     Active Substance: IDELALISIB
     Dosage: 150 MG, BID
     Route: 048
     Dates: start: 20180921, end: 20181221
  13. ATENOLOL. [Concomitant]
     Active Substance: ATENOLOL
  14. ACYCLOVIR [ACICLOVIR] [Concomitant]
     Active Substance: ACYCLOVIR
  15. DIPROSALIC [Concomitant]
     Active Substance: BETAMETHASONE DIPROPIONATE
     Indication: RASH
     Dosage: UNK
     Route: 061
     Dates: start: 20181221

REACTIONS (1)
  - Erysipelas [Recovered/Resolved]

NARRATIVE: CASE EVENT DATE: 20190617
